FAERS Safety Report 11153044 (Version 1)
Quarter: 2015Q2

REPORT INFORMATION
  Report Type: Spontaneous
  Country: JP (occurrence: JP)
  Receive Date: 20150601
  Receipt Date: 20150601
  Transmission Date: 20150821
  Serious: Yes (Death)
  Sender: FDA-Public Use
  Company Number: JP-009507513-1505JPN015678

PATIENT
  Age: 57 Year
  Sex: Male
  Weight: 38 kg

DRUGS (5)
  1. CANCIDAS [Suspect]
     Active Substance: CASPOFUNGIN ACETATE
     Indication: PROPHYLAXIS
     Dosage: 70 MG, QD
     Route: 041
     Dates: start: 20130921, end: 20130921
  2. THYMOGLOBULIN [Concomitant]
     Active Substance: LAPINE T-LYMPHOCYTE IMMUNE GLOBULIN
     Indication: GRAFT VERSUS HOST DISEASE
     Dosage: 40 MG, QD
     Route: 042
     Dates: start: 20130927, end: 20130927
  3. CANCIDAS [Suspect]
     Active Substance: CASPOFUNGIN ACETATE
     Indication: PROPHYLAXIS
     Dosage: 50 MG, QD
     Route: 041
     Dates: start: 20130922, end: 20131012
  4. SULBACILLIN [Concomitant]
     Active Substance: AMPICILLIN SODIUM\SULBACTAM SODIUM
     Indication: PNEUMONIA
     Dosage: 3 G, BID
     Route: 042
     Dates: start: 20130920, end: 20130930
  5. MEROPENEM. [Concomitant]
     Active Substance: MEROPENEM
     Indication: PNEUMONIA
     Dosage: 1 G, TID
     Route: 042
     Dates: start: 20131001, end: 20131012

REACTIONS (1)
  - Acute graft versus host disease in intestine [Fatal]

NARRATIVE: CASE EVENT DATE: 20131006
